FAERS Safety Report 4685264-1 (Version None)
Quarter: 2005Q2

REPORT INFORMATION
  Report Type: 
  Country: None (occurrence: None)
  Receive Date: 20050608
  Receipt Date: 20050531
  Transmission Date: 20051028
  Serious: Yes (Hospitalization)
  Sender: FDA-Public Use
  Company Number: PHBS2005MX07906

PATIENT
  Age: 24 Year
  Sex: Female
  Weight: 66 kg

DRUGS (4)
  1. ZELMAC [Suspect]
     Indication: IRRITABLE BOWEL SYNDROME
     Dosage: 12 MG, QD
     Route: 048
     Dates: start: 20040312
  2. ZELMAC [Suspect]
     Dosage: 6 MG, QD
     Route: 048
  3. ZELMAC [Suspect]
     Dosage: 6MG EVERY 24 HOURS
     Dates: end: 20040403
  4. MICROLAX [Concomitant]
     Dosage: UNK, ONCE/SINGLE
     Route: 054

REACTIONS (2)
  - DIARRHOEA [None]
  - PAIN [None]
